FAERS Safety Report 19294978 (Version 1)
Quarter: 2021Q2

REPORT INFORMATION
  Report Type: Spontaneous
  Country: PL (occurrence: PL)
  Receive Date: 20210524
  Receipt Date: 20210524
  Transmission Date: 20210717
  Serious: Yes (Other)
  Sender: FDA-Public Use
  Company Number: PL-JNJFOC-20210536548

PATIENT
  Age: 54 Year
  Sex: Male

DRUGS (8)
  1. CELECOXIB. [Concomitant]
     Active Substance: CELECOXIB
  2. GINGKO BILOBA C200 [Concomitant]
  3. PERAZINE [Concomitant]
     Active Substance: PERAZINE
  4. ATORVASTATIN 10 MG [Concomitant]
     Active Substance: ATORVASTATIN
  5. ZUCLOPENTHIXOL [Suspect]
     Active Substance: ZUCLOPENTHIXOL
     Indication: PRODUCT USED FOR UNKNOWN INDICATION
     Route: 065
  6. RISPERDAL [Suspect]
     Active Substance: RISPERIDONE
     Indication: PRODUCT USED FOR UNKNOWN INDICATION
     Route: 065
  7. AMLODIPIN 10 MG [Concomitant]
     Active Substance: AMLODIPINE BESYLATE
  8. NEBIVOLOL ? TABLET [Concomitant]

REACTIONS (3)
  - Increased appetite [Unknown]
  - Anticholinergic syndrome [Unknown]
  - Sedation [Unknown]
